FAERS Safety Report 13036839 (Version 3)
Quarter: 2016Q4

REPORT INFORMATION
  Report Type: Report from Study
  Country: None (occurrence: JP)
  Receive Date: 20161216
  Receipt Date: 20161227
  Transmission Date: 20170207
  Serious: Yes (Death, Hospitalization)
  Sender: FDA-Public Use
  Company Number: JP-ABBVIE-16P-087-1812121-00

PATIENT
  Age: 77 Year
  Sex: Male
  Weight: 72 kg

DRUGS (4)
  1. PILSICAINIDE HYDROCHLORIDE HYDRATE [Concomitant]
     Active Substance: PILSICAINIDE HYDROCHLORIDE HEMIHYDRATE
     Indication: ATRIAL FIBRILLATION
     Route: 048
  2. SILODOSIN [Concomitant]
     Active Substance: SILODOSIN
     Indication: BENIGN PROSTATIC HYPERPLASIA
     Route: 048
  3. VIEKIRAX [Suspect]
     Active Substance: OMBITASVIR\PARITAPREVIR\RITONAVIR
     Indication: CHRONIC HEPATITIS C
     Route: 048
     Dates: start: 20160301, end: 20160524
  4. BISOPROLOL FUMARATE. [Concomitant]
     Active Substance: BISOPROLOL FUMARATE
     Indication: HYPERTENSION
     Route: 048

REACTIONS (2)
  - Cerebral infarction [Fatal]
  - Atrial fibrillation [Fatal]
